FAERS Safety Report 8372003-6 (Version None)
Quarter: 2012Q2

REPORT INFORMATION
  Report Type: 
  Country: None (occurrence: None)
  Receive Date: 20120518
  Receipt Date: 20120510
  Transmission Date: 20120825
  Serious: Yes (Death, Hospitalization)
  Sender: FDA-Public Use
  Company Number: PT-BAXTER-2012BAX005198

PATIENT
  Sex: Male

DRUGS (13)
  1. EXTRANEAL [Suspect]
     Route: 033
     Dates: end: 20120506
  2. FUROSEMIDE [Concomitant]
  3. IRON [Concomitant]
  4. SIMVASTATIN [Concomitant]
  5. CLONIDINE [Concomitant]
  6. ACETYLSALICYLIC ACID SRT [Concomitant]
  7. INSULIN [Concomitant]
  8. LISINOPRIL [Concomitant]
  9. PHYSIONEAL 40 GLUCOSE 1,36% P/V / 13,6 MG/ML [Suspect]
     Route: 033
     Dates: end: 20120506
  10. CALCIUM CARBONATE [Concomitant]
  11. MIRCERA [Concomitant]
  12. ALFACALCIDOL [Concomitant]
  13. DIULO [Concomitant]

REACTIONS (1)
  - ACUTE MYOCARDIAL INFARCTION [None]
